FAERS Safety Report 22211672 (Version 1)
Quarter: 2023Q2

REPORT INFORMATION
  Report Type: Spontaneous
  Country: US (occurrence: None)
  Receive Date: 20230413
  Receipt Date: 20230413
  Transmission Date: 20230721
  Serious: No
  Sender: FDA-Public Use
  Company Number: None

PATIENT
  Age: 56 Year
  Sex: Female
  Weight: 92.35 kg

DRUGS (4)
  1. VERZENIO [Suspect]
     Active Substance: ABEMACICLIB
     Indication: Breast cancer female
     Dosage: FREQUENCY : TWICE A DAY;?
     Route: 048
  2. LIDOCAINE [Concomitant]
     Active Substance: LIDOCAINE
  3. PERCOCET [Concomitant]
     Active Substance: ACETAMINOPHEN\OXYCODONE HYDROCHLORIDE
  4. LETROZOLE [Concomitant]
     Active Substance: LETROZOLE

REACTIONS (5)
  - Metastases to bone [None]
  - Red blood cell count decreased [None]
  - Drug intolerance [None]
  - Malignant neoplasm progression [None]
  - Breast cancer [None]
